FAERS Safety Report 8714951 (Version 2)
Quarter: 2014Q1

REPORT INFORMATION
  Report Type: Report from Study
  Country: CA (occurrence: CA)
  Receive Date: 20120809
  Receipt Date: 20140307
  Transmission Date: 20141002
  Serious: Yes (Other)
  Sender: FDA-Public Use
  Company Number: CA-JNJFOC-20120800724

PATIENT
  Age: 57 Year
  Sex: Female
  Weight: 85 kg

DRUGS (5)
  1. REMICADE [Suspect]
     Indication: PSORIATIC ARTHROPATHY
     Route: 042
     Dates: start: 20100323
  2. PANTOLOC [Concomitant]
     Route: 065
  3. METHOTREXATE [Concomitant]
     Indication: ARTHRITIS
     Route: 065
  4. FOLIC ACID [Concomitant]
     Route: 048
  5. CALCIUM [Concomitant]
     Route: 048

REACTIONS (2)
  - Exophthalmos [Recovered/Resolved]
  - Eye haemorrhage [Recovered/Resolved]
